FAERS Safety Report 9852333 (Version 2)
Quarter: 2014Q2

REPORT INFORMATION
  Report Type: Spontaneous
  Country: US (occurrence: None)
  Receive Date: 20140127
  Receipt Date: 20140415
  Transmission Date: 20141212
  Serious: Yes (Other)
  Sender: FDA-Public Use
  Company Number: 2014-US-000410

PATIENT
  Age: 35 Year
  Sex: Female

DRUGS (2)
  1. XYREM (SODIUM OXYBATE) ORAL SOLUTION, 500MG/ML [Suspect]
     Indication: NARCOLEPSY
     Route: 048
     Dates: start: 201303, end: 2013
  2. ANTIBIOTICS (ANTIBIOTICS) [Suspect]
     Indication: CHRONIC SINUSITIS
     Dates: start: 2013

REACTIONS (11)
  - Pulmonary hypertension [None]
  - Chronic sinusitis [None]
  - Constipation [None]
  - Night sweats [None]
  - Abdominal discomfort [None]
  - Decreased appetite [None]
  - Hyperhidrosis [None]
  - Blood potassium decreased [None]
  - Chest pain [None]
  - Dyspnoea [None]
  - Fatigue [None]
